FAERS Safety Report 21053863 (Version 2)
Quarter: 2022Q3

REPORT INFORMATION
  Report Type: Report from Study
  Country: CA (occurrence: CA)
  Receive Date: 20220707
  Receipt Date: 20220929
  Transmission Date: 20221027
  Serious: Yes (Other)
  Sender: FDA-Public Use
  Company Number: CA-JNJFOC-20220544082

PATIENT
  Age: 30 Year
  Sex: Female

DRUGS (1)
  1. REMICADE [Suspect]
     Active Substance: INFLIXIMAB
     Indication: Crohn^s disease
     Dosage: LAST REMICADE INFUSION WAS 25-APR-2022
     Route: 042

REACTIONS (4)
  - COVID-19 [Unknown]
  - Anaemia [Unknown]
  - Urinary tract infection [Unknown]
  - Exposure during pregnancy [Not Recovered/Not Resolved]

NARRATIVE: CASE EVENT DATE: 20220101
